FAERS Safety Report 7133921-X (Version None)
Quarter: 2010Q4

REPORT INFORMATION
  Report Type: 
  Country: None (occurrence: None)
  Receive Date: 20101203
  Receipt Date: 20100930
  Transmission Date: 20110411
  Serious: Yes (Hospitalization)
  Sender: FDA-Public Use
  Company Number: US-BAYER-201038259NA

PATIENT

DRUGS (12)
  1. YAZ [Suspect]
     Route: 048
  2. YASMIN [Suspect]
     Indication: ACNE
     Route: 048
     Dates: start: 20020101, end: 20040101
  3. AMLODIPINE [Concomitant]
  4. BACLOFEN [Concomitant]
  5. PREVACID [Concomitant]
  6. SIMVASTATIN [Concomitant]
  7. XOPENEX [Concomitant]
     Indication: ASTHMA
  8. ALBUTEROL [Concomitant]
  9. NORVASC [Concomitant]
  10. PROTONIX [Concomitant]
  11. ULTRAM [Concomitant]
  12. PREVACID [Concomitant]

REACTIONS (5)
  - CHOLECYSTITIS CHRONIC [None]
  - CHOLELITHIASIS [None]
  - CONSTIPATION [None]
  - GASTRITIS [None]
  - HEPATIC STEATOSIS [None]
